FAERS Safety Report 9335237 (Version 1)
Quarter: 2013Q2

REPORT INFORMATION
  Report Type: Spontaneous
  Country: US (occurrence: US)
  Receive Date: 20130606
  Receipt Date: 20130606
  Transmission Date: 20140414
  Serious: Yes (Hospitalization)
  Sender: FDA-Public Use
  Company Number: US-TEVA-410360USA

PATIENT
  Age: 0 Day
  Sex: Male
  Weight: 77.18 kg

DRUGS (1)
  1. NUVIGIL [Suspect]

REACTIONS (1)
  - Use of accessory respiratory muscles [Recovered/Resolved]
